FAERS Safety Report 9340480 (Version 1)
Quarter: 2013Q2

REPORT INFORMATION
  Report Type: Spontaneous
  Country: US (occurrence: US)
  Receive Date: 20130610
  Receipt Date: 20130610
  Transmission Date: 20140414
  Serious: Yes (Other)
  Sender: FDA-Public Use
  Company Number: US-BAYER-2013-068198

PATIENT
  Age: 87 Year
  Sex: Male
  Weight: 70.3 kg

DRUGS (3)
  1. BAYER ASPIRIN REGIMEN ADULT LOW STRENGTH [Suspect]
     Indication: ISCHAEMIC HEART DISEASE PROPHYLAXIS
     Dosage: 1 DF, QD
     Route: 048
     Dates: start: 2008, end: 201305
  2. CRESTOR [Concomitant]
  3. NEXIUM [Concomitant]

REACTIONS (2)
  - Faeces discoloured [Not Recovered/Not Resolved]
  - Post procedural haemorrhage [Recovering/Resolving]
